FAERS Safety Report 7785853-1 (Version None)
Quarter: 2011Q3

REPORT INFORMATION
  Report Type: 
  Country: None (occurrence: None)
  Receive Date: 20110929
  Receipt Date: 20110921
  Transmission Date: 20111222
  Serious: Yes (Hospitalization)
  Sender: FDA-Public Use
  Company Number: NZ-AMGEN-NZLSP2011049651

PATIENT
  Sex: Female

DRUGS (2)
  1. ANTINEOPLASTIC AGENTS [Concomitant]
  2. NEULASTIM [Suspect]
     Indication: PROPHYLAXIS

REACTIONS (2)
  - NEUTROPENIA [None]
  - DRUG INEFFECTIVE [None]
